FAERS Safety Report 15979728 (Version 1)
Quarter: 2019Q1

REPORT INFORMATION
  Report Type: Spontaneous
  Country: US (occurrence: US)
  Receive Date: 20190217
  Receipt Date: 20190217
  Transmission Date: 20190418
  Serious: No
  Sender: FDA-Public Use
  Company Number: None

PATIENT
  Age: 45 Year
  Sex: Female
  Weight: 82.8 kg

DRUGS (8)
  1. AIMOVIG [Suspect]
     Active Substance: ERENUMAB-AOOE
     Indication: MIGRAINE PROPHYLAXIS
     Dosage: ?          QUANTITY:2 INJECTION(S);OTHER FREQUENCY:MONTHLY;?
     Route: 030
     Dates: start: 20190131
  2. VITAMIN B2 [Concomitant]
     Active Substance: RIBOFLAVIN
  3. TRIAMETERENE/HCTZ [Concomitant]
     Active Substance: HYDROCHLOROTHIAZIDE\TRIAMTERENE
  4. COENZYME Q10 [Concomitant]
     Active Substance: UBIDECARENONE
  5. VITAMIN D [Concomitant]
     Active Substance: CHOLECALCIFEROL
  6. MAGNESIUM [Concomitant]
     Active Substance: MAGNESIUM
  7. PROMETHAZINE [Concomitant]
     Active Substance: PROMETHAZINE\PROMETHAZINE HYDROCHLORIDE
  8. AMANTADINE. [Concomitant]
     Active Substance: AMANTADINE HYDROCHLORIDE

REACTIONS (17)
  - Heart rate increased [None]
  - Alopecia [None]
  - Flatulence [None]
  - Sciatica [None]
  - Tinnitus [None]
  - Constipation [None]
  - Hot flush [None]
  - Fatigue [None]
  - Drug ineffective [None]
  - Temperature intolerance [None]
  - Migraine [None]
  - Dysgeusia [None]
  - Sleep disorder [None]
  - Hyperhidrosis [None]
  - Paraesthesia [None]
  - Pain [None]
  - Muscle tightness [None]

NARRATIVE: CASE EVENT DATE: 20190201
